FAERS Safety Report 8831931 (Version 2)
Quarter: 2012Q4

REPORT INFORMATION
  Report Type: 
  Country: US (occurrence: US)
  Receive Date: 20121009
  Receipt Date: 20121031
  Transmission Date: 20130627
  Serious: No
  Sender: FDA-Public Use
  Company Number: US-TEVA-360270USA

PATIENT
  Age: 28 Year
  Sex: Male

DRUGS (7)
  1. TRISENOX [Suspect]
     Indication: ACUTE PROMYELOCYTIC LEUKAEMIA
     Dosage: 20.5 Milligram Daily; 0.15 mg/kg
     Dates: start: 20120904
  2. POTASSIUM [Concomitant]
     Dosage: 40 Milliequivalents Daily;
  3. MAGNESIUM OXIDE [Concomitant]
     Dosage: 800 Milligram Daily;
     Route: 048
  4. OMEPRAZOLE [Concomitant]
  5. AMLODIPINE [Concomitant]
  6. LISINOPRIL [Concomitant]
     Dosage: 40 Milligram Daily;
  7. CHLORHEXIDINE [Concomitant]

REACTIONS (3)
  - Neuropathy peripheral [Recovered/Resolved]
  - Paraesthesia [Recovered/Resolved]
  - Paraesthesia oral [Recovered/Resolved]
